FAERS Safety Report 7298572-5 (Version None)
Quarter: 2011Q1

REPORT INFORMATION
  Report Type: 
  Country: None (occurrence: None)
  Receive Date: 20110217
  Receipt Date: 20110215
  Transmission Date: 20110831
  Serious: Yes (Other)
  Sender: FDA-Public Use
  Company Number: CH-PFIZER INC-2011033221

PATIENT
  Age: 34 Year
  Sex: Male
  Weight: 80 kg

DRUGS (4)
  1. CHAMPIX [Suspect]
     Dosage: 1 MG, 2X/DAY
     Route: 048
     Dates: start: 20110103, end: 20110110
  2. TRANXILIUM [Concomitant]
     Dosage: 20 MG, 2X/DAY
     Route: 048
  3. CHAMPIX [Suspect]
     Indication: SMOKING CESSATION THERAPY
     Dosage: INCREASING DOSAGES, UNSPECIFIED
     Route: 048
     Dates: start: 20101227, end: 20110102
  4. METHADONE [Concomitant]
     Dosage: 5 MG, 1X/DAY
     Route: 048

REACTIONS (2)
  - AFFECTIVE DISORDER [None]
  - ANXIETY [None]
